FAERS Safety Report 6010784-7 (Version None)
Quarter: 2008Q4

REPORT INFORMATION
  Report Type: 
  Country: None (occurrence: None)
  Receive Date: 20081218
  Receipt Date: 20081209
  Transmission Date: 20090506
  Serious: Yes (Other)
  Sender: FDA-Public Use
  Company Number: PHEH2008US10225

PATIENT
  Sex: Female

DRUGS (4)
  1. ZOMETA [Suspect]
     Indication: LUNG NEOPLASM MALIGNANT
     Dosage: UNK
     Route: 042
     Dates: start: 20081112, end: 20081112
  2. SYNTHROID [Concomitant]
     Dosage: 0.1 MG, QD
     Route: 048
  3. VITAMIN C AND E [Concomitant]
  4. M.V.I. [Concomitant]

REACTIONS (6)
  - ARTHRALGIA [None]
  - BACK PAIN [None]
  - FATIGUE [None]
  - HYPOKINESIA [None]
  - MUSCULAR WEAKNESS [None]
  - MYALGIA [None]
